FAERS Safety Report 5878637-2 (Version None)
Quarter: 2008Q3

REPORT INFORMATION
  Report Type: 
  Country: None (occurrence: None)
  Receive Date: 20080909
  Receipt Date: 20080826
  Transmission Date: 20090109
  Serious: Yes (Hospitalization)
  Sender: FDA-Public Use
  Company Number: 001027

PATIENT
  Age: 56 Year
  Sex: Male
  Weight: 76 kg

DRUGS (3)
  1. PLETAL [Suspect]
     Indication: CEREBRAL INFARCTION
  2. MUCOSTA (REBAMIPIDE) TABLET, 100 MG [Concomitant]
  3. MICARDIS [Concomitant]

REACTIONS (8)
  - ANAEMIA [None]
  - BLOOD UREA INCREASED [None]
  - GASTRIC ULCER HAEMORRHAGE [None]
  - HAEMATOCRIT DECREASED [None]
  - HAEMOGLOBIN DECREASED [None]
  - MONOCYTE PERCENTAGE INCREASED [None]
  - RED BLOOD CELL COUNT DECREASED [None]
  - SYNCOPE [None]
